FAERS Safety Report 6899858-6 (Version None)
Quarter: 2010Q3

REPORT INFORMATION
  Report Type: 
  Country: None (occurrence: None)
  Receive Date: 20100803
  Receipt Date: 20100721
  Transmission Date: 20110219
  Serious: Yes (Hospitalization, Other)
  Sender: FDA-Public Use
  Company Number: CA-ELI_LILLY_AND_COMPANY-CA201007005267

PATIENT
  Age: 60 Year
  Sex: Female

DRUGS (18)
  1. FORTEO [Suspect]
     Indication: OSTEOPOROSIS
     Dosage: 20 UG, DAILY (1/D)
     Route: 058
     Dates: start: 20090729, end: 20100715
  2. NITRO                              /00003201/ [Concomitant]
     Dosage: 0.4 MG, UNK
  3. NITRO                              /00003201/ [Concomitant]
     Dosage: UNK, AS NEEDED
  4. CALCIUM CARBONATE [Concomitant]
     Dosage: 1500 MG, DAILY (1/D)
  5. VITAMIN D [Concomitant]
     Dosage: 1000 IU, DAILY (1/D)
  6. LIPITOR [Concomitant]
     Dosage: 40 MG, EACH EVENING
  7. EZETROL [Concomitant]
     Dosage: 10 MG, EACH EVENING
  8. PANTOPRAZOLE [Concomitant]
     Dosage: 40 MG, EACH MORNING
  9. PLAVIX [Concomitant]
     Dosage: 75 MG, EACH MORNING
  10. CONJUGATED ESTROGENS [Concomitant]
     Dosage: 0.625 MG, EACH MORNING
  11. ELTROXIN [Concomitant]
     Dosage: 0.1 MG, EACH MORNING
  12. TRAZODONE [Concomitant]
     Dosage: 150 MG, EACH EVENING
  13. IMOVANE [Concomitant]
     Dosage: 18.75 MG, EACH EVENING
  14. HYDROMORPHONE HCL [Concomitant]
     Dosage: 18 MG, EACH MORNING
  15. HYDROMORPHONE HCL [Concomitant]
     Dosage: 15 MG, EACH EVENING
  16. DEMEROL [Concomitant]
     Dosage: UNK, AS NEEDED
  17. DILAUDID [Concomitant]
     Dosage: UNK, AS NEEDED
  18. PERCOCET [Concomitant]
     Indication: PAIN
     Dosage: UNK, AS NEEDED

REACTIONS (3)
  - CONVULSION [None]
  - LOSS OF CONSCIOUSNESS [None]
  - STRESS CARDIOMYOPATHY [None]
